FAERS Safety Report 24532051 (Version 1)
Quarter: 2024Q4

REPORT INFORMATION
  Report Type: Spontaneous
  Country: CA (occurrence: CA)
  Receive Date: 20241022
  Receipt Date: 20241022
  Transmission Date: 20250115
  Serious: Yes (Hospitalization, Disabling)
  Sender: AMGEN
  Company Number: CA-AMGEN-CANSP2024207307

PATIENT
  Age: 85 Year
  Sex: Female
  Weight: 48 kg

DRUGS (5)
  1. PROLIA [Suspect]
     Active Substance: DENOSUMAB
     Indication: Osteoporosis
     Dosage: 60 MILLIGRAM, Q6MO
     Route: 058
  2. HYDROMORPHONE [Concomitant]
     Active Substance: HYDROMORPHONE
  3. ESOMEPRAZOLE [Concomitant]
     Active Substance: ESOMEPRAZOLE
  4. CELEBREX [Concomitant]
     Active Substance: CELECOXIB
     Route: 065
  5. BETAHISTINE [Concomitant]
     Active Substance: BETAHISTINE

REACTIONS (3)
  - Spinal fracture [Recovering/Resolving]
  - Inappropriate schedule of product administration [Recovering/Resolving]
  - Vitamin D decreased [Recovering/Resolving]
